FAERS Safety Report 13502700 (Version 2)
Quarter: 2017Q2

REPORT INFORMATION
  Report Type: Spontaneous
  Country: US (occurrence: US)
  Receive Date: 20170502
  Receipt Date: 20170523
  Transmission Date: 20170830
  Serious: No
  Sender: FDA-Public Use
  Company Number: US-ASTRAZENECA-2017SE41451

PATIENT
  Age: 844 Month
  Sex: Female
  Weight: 136.1 kg

DRUGS (1)
  1. BYDUREON [Suspect]
     Active Substance: EXENATIDE
     Indication: BLOOD GLUCOSE ABNORMAL
     Route: 058
     Dates: start: 201702

REACTIONS (3)
  - Wrong technique in product usage process [Unknown]
  - Device malfunction [Unknown]
  - Injection site nodule [Unknown]

NARRATIVE: CASE EVENT DATE: 201702
